FAERS Safety Report 12550244 (Version 1)
Quarter: 2016Q3

REPORT INFORMATION
  Report Type: Spontaneous
  Country: US (occurrence: US)
  Receive Date: 20160712
  Receipt Date: 20160712
  Transmission Date: 20161109
  Serious: No
  Sender: FDA-Public Use
  Company Number: PHEH2016US016971

PATIENT

DRUGS (2)
  1. JADENU [Suspect]
     Active Substance: DEFERASIROX
     Dosage: 7 MG, UNK
     Route: 065
  2. JADENU [Suspect]
     Active Substance: DEFERASIROX
     Indication: PRODUCT USED FOR UNKNOWN INDICATION
     Dosage: 14 MG, UNK
     Route: 065

REACTIONS (1)
  - Diarrhoea [Unknown]
